FAERS Safety Report 7936787-0 (Version None)
Quarter: 2011Q4

REPORT INFORMATION
  Report Type: 
  Country: None (occurrence: None)
  Receive Date: 20111123
  Receipt Date: 20111115
  Transmission Date: 20120403
  Serious: Yes (Death, Other)
  Sender: FDA-Public Use
  Company Number: ES-CELGENEUS-144-20785-11112224

PATIENT

DRUGS (1)
  1. THALIDOMIDE [Suspect]
     Dosage: 200 MILLIGRAM
     Route: 048

REACTIONS (4)
  - DEATH [None]
  - PERIPHERAL SENSORY NEUROPATHY [None]
  - HEPATIC ENCEPHALOPATHY [None]
  - GENERAL SYMPTOM [None]
